FAERS Safety Report 8532415 (Version 6)
Quarter: 2014Q2

REPORT INFORMATION
  Report Type: Spontaneous
  Country: US (occurrence: US)
  Receive Date: 20120426
  Receipt Date: 20140515
  Transmission Date: 20141212
  Serious: Yes (Hospitalization)
  Sender: FDA-Public Use
  Company Number: US-GLAXOSMITHKLINE-A0788948A

PATIENT
  Age: 67 Year
  Sex: Male

DRUGS (5)
  1. AVANDIA [Suspect]
     Indication: TYPE 2 DIABETES MELLITUS
     Dosage: 8MG PER DAY
     Route: 048
     Dates: start: 2005, end: 200703
  2. AVANDAMET [Suspect]
     Indication: TYPE 2 DIABETES MELLITUS
     Route: 048
     Dates: start: 200703, end: 200705
  3. ASPIRIN [Concomitant]
  4. AVALIDE [Concomitant]
  5. FISH OIL [Concomitant]

REACTIONS (5)
  - Myocardial infarction [Unknown]
  - Acute coronary syndrome [Unknown]
  - Myocardial ischaemia [Unknown]
  - Cardiac failure congestive [Unknown]
  - Injury [Unknown]
